FAERS Safety Report 11570386 (Version 1)
Quarter: 2015Q3

REPORT INFORMATION
  Report Type: Spontaneous
  Country: None (occurrence: IT)
  Receive Date: 20150929
  Receipt Date: 20150929
  Transmission Date: 20151125
  Serious: Yes (Congenital Anomaly)
  Sender: FDA-Public Use
  Company Number: IT-MERCKDARMSTADT-8026226

PATIENT

DRUGS (1)
  1. NOVOTHYROX [Suspect]
     Active Substance: LEVOTHYROXINE SODIUM

REACTIONS (5)
  - Laryngomalacia [None]
  - Joint dislocation [None]
  - Foetal exposure during pregnancy [None]
  - Atrial septal defect [None]
  - Cleft palate [None]
